FAERS Safety Report 11199678 (Version 7)
Quarter: 2017Q1

REPORT INFORMATION
  Report Type: Report from Study
  Country: US (occurrence: US)
  Receive Date: 20150618
  Receipt Date: 20170120
  Transmission Date: 20170428
  Serious: Yes (Hospitalization, Other)
  Sender: FDA-Public Use
  Company Number: US-SA-2015SA083948

PATIENT
  Age: 35 Year
  Sex: Male

DRUGS (1)
  1. LEMTRADA [Suspect]
     Active Substance: ALEMTUZUMAB
     Indication: MULTIPLE SCLEROSIS
     Route: 041
     Dates: start: 20150420, end: 20150424

REACTIONS (10)
  - Malaise [Unknown]
  - Laboratory test abnormal [Recovered/Resolved]
  - Hospitalisation [Unknown]
  - White blood cell count increased [Unknown]
  - Laboratory test abnormal [Unknown]
  - Pulmonary oedema [Unknown]
  - Back pain [Unknown]
  - Pulmonary infarction [Recovered/Resolved]
  - Respiratory tract infection [Unknown]
  - Multiple sclerosis relapse [Recovering/Resolving]

NARRATIVE: CASE EVENT DATE: 2015
